FAERS Safety Report 6573751-0 (Version None)
Quarter: 2010Q1

REPORT INFORMATION
  Report Type: 
  Country: None (occurrence: None)
  Receive Date: 20100208
  Receipt Date: 20100201
  Transmission Date: 20100710
  Serious: Yes (Congenital Anomaly)
  Sender: FDA-Public Use
  Company Number: B0630098A

PATIENT

DRUGS (2)
  1. LAMOTRIGINE [Suspect]
  2. TOPAMAX [Suspect]

REACTIONS (3)
  - CONGENITAL ANOMALY [None]
  - DYSMORPHISM [None]
  - MATERNAL DRUGS AFFECTING FOETUS [None]
